FAERS Safety Report 7580623-1 (Version None)
Quarter: 2011Q2

REPORT INFORMATION
  Report Type: 
  Country: None (occurrence: None)
  Receive Date: 20110629
  Receipt Date: 20110624
  Transmission Date: 20111010
  Serious: Yes (Other)
  Sender: FDA-Public Use
  Company Number: BR-SANOFI-AVENTIS-2011SA040520

PATIENT
  Age: 0 Day
  Sex: Male
  Weight: 3.79 kg

DRUGS (1)
  1. ENOXAPARIN SODIUM [Suspect]
     Route: 064

REACTIONS (2)
  - RESPIRATORY DISORDER NEONATAL [None]
  - DRUG EXPOSURE DURING PREGNANCY [None]
